FAERS Safety Report 8450534-8 (Version None)
Quarter: 2012Q2

REPORT INFORMATION
  Report Type: 
  Country: None (occurrence: None)
  Receive Date: 20120614
  Receipt Date: 20120614
  Transmission Date: 20120825
  Serious: Yes (Other)
  Sender: FDA-Public Use
  Company Number: None

PATIENT
  Sex: Female

DRUGS (2)
  1. CETHALEXIN [Concomitant]
  2. HYDROCORTISONE 1% OINTMENT [Suspect]
     Indication: SKIN ULCER
     Dosage: SPARINGLY 3/DAY TOP
     Route: 061
     Dates: start: 20120613, end: 20120613

REACTIONS (2)
  - APPLICATION SITE ERYTHEMA [None]
  - APPLICATION SITE PAIN [None]
